FAERS Safety Report 12283908 (Version 1)
Quarter: 2016Q2

REPORT INFORMATION
  Report Type: Spontaneous
  Country: US (occurrence: US)
  Receive Date: 20160419
  Receipt Date: 20160419
  Transmission Date: 20160815
  Serious: No
  Sender: FDA-Public Use
  Company Number: US-BANPHARM-20154445

PATIENT
  Age: 41 Year
  Sex: Female
  Weight: 58.97 kg

DRUGS (1)
  1. ALEVE [Suspect]
     Active Substance: NAPROXEN SODIUM
     Indication: HEADACHE
     Dosage: 1 DF, PRN,
     Route: 048
     Dates: start: 2008

REACTIONS (1)
  - Abdominal pain upper [Unknown]
